FAERS Safety Report 5455906-1 (Version None)
Quarter: 2007Q3

REPORT INFORMATION
  Report Type: 
  Country: None (occurrence: None)
  Receive Date: 20070918
  Receipt Date: 20070330
  Transmission Date: 20080115
  Serious: Yes (Other)
  Sender: FDA-Public Use
  Company Number: US-ASTRAZENECA-2006UW24160

PATIENT
  Sex: Female
  Weight: 61.4 kg

DRUGS (9)
  1. SEROQUEL [Suspect]
     Indication: SCHIZOPHRENIA
     Route: 048
     Dates: start: 20050101
  2. HALDOL [Concomitant]
  3. NAVANE [Concomitant]
  4. RISPERDAL [Concomitant]
  5. TRILAFON [Concomitant]
  6. ZYPREXA [Concomitant]
  7. WELLBUTRIN [Concomitant]
  8. MARIJUANA [Concomitant]
     Dates: start: 19740101, end: 19850101
  9. COCAINE [Concomitant]
     Dates: start: 19850101, end: 19900101

REACTIONS (3)
  - DIABETES MELLITUS [None]
  - PANCREATITIS [None]
  - TARDIVE DYSKINESIA [None]
